FAERS Safety Report 6456776-5 (Version None)
Quarter: 2009Q4

REPORT INFORMATION
  Report Type: 
  Country: None (occurrence: None)
  Receive Date: 20091124
  Receipt Date: 20091124
  Transmission Date: 20100525
  Serious: No
  Sender: FDA-Public Use
  Company Number: None

PATIENT
  Age: 51 Year
  Sex: Male

DRUGS (2)
  1. CARBAMAZEPINE [Suspect]
  2. ALLOPURINOL [Suspect]

REACTIONS (1)
  - LEUKOCYTOCLASTIC VASCULITIS [None]
